FAERS Safety Report 5649471-3 (Version None)
Quarter: 2008Q1

REPORT INFORMATION
  Report Type: 
  Country: None (occurrence: None)
  Receive Date: 20080304
  Receipt Date: 20080221
  Transmission Date: 20080703
  Serious: Yes (Other)
  Sender: FDA-Public Use
  Company Number: JP-ROCHE-544855

PATIENT
  Age: 8 Year
  Sex: Male
  Weight: 26 kg

DRUGS (6)
  1. TAMIFLU [Suspect]
     Route: 048
     Dates: start: 20080125, end: 20080125
  2. ONON [Suspect]
     Indication: DRUG USE FOR UNKNOWN INDICATION
     Dosage: FORM: ORAL FORMULATION (NOT OTHERWISE SPECIFIED)
     Route: 048
  3. LYSOZYME HYDROCHLORIDE [Suspect]
     Indication: DRUG USE FOR UNKNOWN INDICATION
     Dosage: FORM: ORAL FORMULATION (NOS)
     Route: 048
  4. ASVERIN [Concomitant]
     Route: 048
     Dates: start: 20080125, end: 20080130
  5. BANAN [Concomitant]
     Route: 048
     Dates: start: 20080125, end: 20080130
  6. CYSTEN [Concomitant]
     Dosage: FORM: FINE GRANULE; DRUG NAME: C-CYSTEN
     Route: 048
     Dates: start: 20080125, end: 20080130

REACTIONS (1)
  - DELIRIUM [None]
